FAERS Safety Report 4480640-4 (Version None)
Quarter: 2004Q4

REPORT INFORMATION
  Report Type: 
  Country: None (occurrence: None)
  Receive Date: 20041019
  Receipt Date: 20041004
  Transmission Date: 20050328
  Serious: Yes (Hospitalization)
  Sender: FDA-Public Use
  Company Number: WAES 0410ESP00013

PATIENT
  Age: 58 Year
  Sex: Male

DRUGS (3)
  1. VIOXX [Suspect]
     Indication: INTERVERTEBRAL DISC PROTRUSION
     Dosage: 25 MG/DAILY;   50 MG/DAILY
     Route: 048
     Dates: start: 20030101, end: 20031001
  2. VIOXX [Suspect]
     Indication: INTERVERTEBRAL DISC PROTRUSION
     Dosage: 25 MG/DAILY;   50 MG/DAILY
     Route: 048
     Dates: start: 20030201
  3. TOPIRMATE [Concomitant]

REACTIONS (1)
  - MYOCARDIAL INFARCTION [None]
